FAERS Safety Report 7061264-1 (Version None)
Quarter: 2010Q4

REPORT INFORMATION
  Report Type: 
  Country: None (occurrence: None)
  Receive Date: 20101026
  Receipt Date: 20101013
  Transmission Date: 20110411
  Serious: Yes (Other)
  Sender: FDA-Public Use
  Company Number: US-PFIZER INC-2010129827

PATIENT
  Sex: Female
  Weight: 74.83 kg

DRUGS (4)
  1. LYRICA [Suspect]
     Indication: INTERVERTEBRAL DISC PROTRUSION
     Dosage: UNK
     Route: 048
     Dates: start: 20100901, end: 20100901
  2. LYRICA [Suspect]
     Indication: INFLAMMATORY PAIN
     Dosage: UNK, 2X/DAY
     Dates: start: 20100901, end: 20100901
  3. PREDNISONE [Suspect]
     Indication: RASH
     Dosage: UNK
     Route: 048
     Dates: start: 20100801, end: 20100801
  4. METFORMIN [Concomitant]
     Indication: DIABETES MELLITUS
     Dosage: 1000 MG, 2X/DAY
     Route: 048

REACTIONS (8)
  - AMNESIA [None]
  - CONFUSIONAL STATE [None]
  - INSOMNIA [None]
  - MUSCLE TWITCHING [None]
  - NERVOUSNESS [None]
  - SPEECH DISORDER [None]
  - VISION BLURRED [None]
  - VISUAL IMPAIRMENT [None]
